FAERS Safety Report 14037839 (Version 1)
Quarter: 2017Q4

REPORT INFORMATION
  Report Type: Spontaneous
  Country: US (occurrence: US)
  Receive Date: 20171004
  Receipt Date: 20171004
  Transmission Date: 20180321
  Serious: Yes (Hospitalization)
  Sender: FDA-Public Use
  Company Number: US-B.I. PHARMACEUTICALS,INC./RIDGEFIELD-2017-BI-053838

PATIENT
  Age: 72 Year
  Sex: Male

DRUGS (1)
  1. PRADAXA [Suspect]
     Active Substance: DABIGATRAN ETEXILATE MESYLATE
     Indication: PRODUCT USED FOR UNKNOWN INDICATION
     Dosage: TWICE A DAY;  FORM STRENGTH: 150 MG; FORMULATION: CAPSULE?  ?ACTION(S) TAKEN WITH PRODUCT: DRUG WITH
     Route: 048
     Dates: start: 201705, end: 201709

REACTIONS (1)
  - Gastrointestinal disorder [Unknown]

NARRATIVE: CASE EVENT DATE: 201709
